FAERS Safety Report 9040443 (Version 1)
Quarter: 2013Q1

REPORT INFORMATION
  Report Type: Report from Study
  Country: US (occurrence: US)
  Receive Date: 20130129
  Receipt Date: 20130129
  Transmission Date: 20140127
  Serious: No
  Sender: FDA-Public Use
  Company Number: US-ABBOTT-12P-163-0894164-00

PATIENT
  Age: 20 Year
  Sex: Male

DRUGS (4)
  1. HUMIRA 40 MG/0.8 ML PEN [Suspect]
     Indication: CROHN^S DISEASE
     Dosage: LOADING DOSE 160MG ON 09 JAN 2012
     Dates: start: 20120109, end: 20120109
  2. HUMIRA 40 MG/0.8 ML PEN [Suspect]
  3. HYOSCYAMINE [Concomitant]
     Indication: PRODUCT USED FOR UNKNOWN INDICATION
  4. ZITROTIONHEE CREAM ESP [Concomitant]
     Indication: PSORIASIS

REACTIONS (1)
  - Dry mouth [Recovering/Resolving]
